FAERS Safety Report 9847947 (Version 1)
Quarter: 2014Q1

REPORT INFORMATION
  Report Type: Spontaneous
  Country: US (occurrence: US)
  Receive Date: 20140128
  Receipt Date: 20140128
  Transmission Date: 20141002
  Serious: No
  Sender: FDA-Public Use
  Company Number: US-BIOGENIDEC-2014BI007624

PATIENT
  Sex: Female

DRUGS (1)
  1. TYSABRI [Suspect]
     Indication: MULTIPLE SCLEROSIS
     Route: 042
     Dates: start: 20130920

REACTIONS (6)
  - Stress [Unknown]
  - Nervousness [Unknown]
  - Muscle spasms [Unknown]
  - Sensory disturbance [Unknown]
  - Paraesthesia [Unknown]
  - Neuropathy peripheral [Unknown]
